FAERS Safety Report 8832394 (Version 2)
Quarter: 2012Q4

REPORT INFORMATION
  Report Type: 
  Country: JP (occurrence: JP)
  Receive Date: 20121009
  Receipt Date: 20121101
  Transmission Date: 20130627
  Serious: Yes (Death, Life-Threatening, Hospitalization)
  Sender: FDA-Public Use
  Company Number: JP-ROCHE-1112052

PATIENT
  Age: 63 Year
  Sex: Female
  Weight: 52 kg

DRUGS (11)
  1. AVASTIN [Suspect]
     Indication: BREAST CANCER RECURRENT
     Dosage: Dosage is uncertain.
     Route: 041
     Dates: start: 20120627
  2. TAXOL [Concomitant]
     Indication: BREAST CANCER METASTATIC
     Route: 041
     Dates: start: 200610, end: 200707
  3. TAXOL [Concomitant]
     Route: 041
     Dates: start: 20120627, end: 20120627
  4. ZOMETA [Concomitant]
     Indication: METASTASES TO BONE
     Route: 041
     Dates: start: 200707
  5. DEXART [Concomitant]
     Dosage: Dosage is uncertain.
     Route: 065
  6. GASTER [Concomitant]
     Dosage: Dosage is uncertain.
     Route: 042
  7. LASIX [Concomitant]
     Dosage: Dosage is uncertain.
     Route: 048
  8. ALDACTONE A [Concomitant]
     Dosage: Dosage is uncertain.
     Route: 048
  9. ARTIST [Concomitant]
     Dosage: Dosage is uncertain.
     Route: 048
  10. BLOPRESS [Concomitant]
     Dosage: Dosage is uncertain.
     Route: 048
  11. PARIET [Concomitant]
     Dosage: Dosage is uncertain.
     Route: 048

REACTIONS (2)
  - Oesophageal varices haemorrhage [Recovering/Resolving]
  - Disease progression [Fatal]
